FAERS Safety Report 4494928-4 (Version None)
Quarter: 2004Q4

REPORT INFORMATION
  Report Type: 
  Country: None (occurrence: None)
  Receive Date: 20041104
  Receipt Date: 20041104
  Transmission Date: 20050328
  Serious: Yes (Hospitalization)
  Sender: FDA-Public Use
  Company Number: None

PATIENT
  Age: 32 Year
  Sex: Female
  Weight: 53.5244 kg

DRUGS (1)
  1. SEPTOCAINE [Suspect]
     Indication: HYPERSENSITIVITY
     Dosage: 1/2 CARP (.9CC)
     Dates: start: 20041011

REACTIONS (4)
  - BURNING SENSATION [None]
  - CHEST DISCOMFORT [None]
  - FACIAL NERVE DISORDER [None]
  - NAUSEA [None]
